FAERS Safety Report 11803975 (Version 1)
Quarter: 2015Q4

REPORT INFORMATION
  Report Type: Spontaneous
  Country: GB (occurrence: GB)
  Receive Date: 20151204
  Receipt Date: 20151204
  Transmission Date: 20160305
  Serious: Yes (Hospitalization, Disabling)
  Sender: FDA-Public Use
  Company Number: GB-ASTRAZENECA-2015SF18396

PATIENT
  Age: 67 Year
  Sex: Female

DRUGS (6)
  1. METFORMIN [Concomitant]
     Active Substance: METFORMIN HYDROCHLORIDE
     Indication: TYPE 2 DIABETES MELLITUS
     Route: 048
     Dates: end: 20151020
  2. ATORVASTATIN [Concomitant]
     Active Substance: ATORVASTATIN
     Route: 048
     Dates: end: 20151020
  3. BENDROFLUMETHIAZIDE [Concomitant]
     Active Substance: BENDROFLUMETHIAZIDE
     Route: 048
     Dates: end: 20151020
  4. SAXAGLIPTIN [Concomitant]
     Active Substance: SAXAGLIPTIN
     Indication: TYPE 2 DIABETES MELLITUS
     Route: 048
  5. FORXIGA [Suspect]
     Active Substance: DAPAGLIFLOZIN
     Indication: TYPE 2 DIABETES MELLITUS
     Route: 048
  6. RAMIPRIL. [Concomitant]
     Active Substance: RAMIPRIL
     Route: 048
     Dates: end: 20151020

REACTIONS (11)
  - Blood creatinine increased [Unknown]
  - Hypercalcaemia [Unknown]
  - Feeling of body temperature change [Unknown]
  - Malaise [Unknown]
  - Lethargy [Unknown]
  - Ear infection [Recovered/Resolved]
  - Disease progression [Unknown]
  - Hypophagia [Unknown]
  - Dehydration [Unknown]
  - Urinary tract infection [Recovered/Resolved]
  - Haemoglobin decreased [Unknown]
